FAERS Safety Report 23484029 (Version 1)
Quarter: 2024Q1

REPORT INFORMATION
  Report Type: Report from Study
  Country: US (occurrence: US)
  Receive Date: 20240205
  Receipt Date: 20240205
  Transmission Date: 20240410
  Serious: Yes (Other)
  Sender: FDA-Public Use
  Company Number: US-AUROBINDO-AUR-APL-2024-005404

PATIENT
  Age: 69 Year
  Sex: Female

DRUGS (1)
  1. SEVELAMER CARBONATE [Suspect]
     Active Substance: SEVELAMER CARBONATE
     Indication: End stage renal disease
     Dosage: 9600 MILLIGRAM, ONCE A DAY
     Route: 065

REACTIONS (3)
  - Gastric ulcer [Unknown]
  - Proctitis ulcerative [Unknown]
  - Duodenitis [Unknown]
